FAERS Safety Report 12518535 (Version 2)
Quarter: 2016Q3

REPORT INFORMATION
  Report Type: Report from Study
  Country: FR (occurrence: FR)
  Receive Date: 20160630
  Receipt Date: 20160721
  Transmission Date: 20161109
  Serious: Yes (Other)
  Sender: FDA-Public Use
  Company Number: FR-EMD SERONO-8092014

PATIENT
  Age: 15 Year
  Sex: Male

DRUGS (1)
  1. SAIZEN [Suspect]
     Active Substance: SOMATROPIN
     Indication: GROWTH RETARDATION
     Dates: start: 20150310

REACTIONS (1)
  - Leukopenia [Recovering/Resolving]

NARRATIVE: CASE EVENT DATE: 201601
